FAERS Safety Report 8834474 (Version 3)
Quarter: 2012Q4

REPORT INFORMATION
  Report Type: 
  Country: US (occurrence: US)
  Receive Date: 20121010
  Receipt Date: 20121118
  Transmission Date: 20130627
  Serious: No
  Sender: FDA-Public Use
  Company Number: US-TEVA-360627USA

PATIENT
  Sex: Female

DRUGS (2)
  1. QVAR [Suspect]
     Dosage: 160 Microgram Daily;
  2. ZAPONEX [Concomitant]
     Indication: PANIC ATTACK

REACTIONS (1)
  - Asthma [Recovered/Resolved]
